FAERS Safety Report 21096519 (Version 1)
Quarter: 2022Q3

REPORT INFORMATION
  Report Type: Report from Study
  Country: US (occurrence: US)
  Receive Date: 20220718
  Receipt Date: 20220718
  Transmission Date: 20221027
  Serious: Yes (Other)
  Sender: FDA-Public Use
  Company Number: US-TAKEDA-2022TUS046017

PATIENT
  Age: 61 Year
  Sex: Male

DRUGS (2)
  1. ANTI-INHIBITOR COAGULANT COMPLEX [Suspect]
     Active Substance: ANTI-INHIBITOR COAGULANT COMPLEX
     Indication: Product used for unknown indication
     Dosage: 2769 INTERNATIONAL UNIT
     Route: 065
  2. ANTI-INHIBITOR COAGULANT COMPLEX [Suspect]
     Active Substance: ANTI-INHIBITOR COAGULANT COMPLEX
     Dosage: 7200 INTERNATIONAL UNIT
     Route: 065

REACTIONS (4)
  - Mouth haemorrhage [Unknown]
  - Mouth swelling [Unknown]
  - Oral pain [Unknown]
  - Dental operation [Unknown]

NARRATIVE: CASE EVENT DATE: 20220623
